FAERS Safety Report 10575912 (Version 3)
Quarter: 2015Q1

REPORT INFORMATION
  Report Type: Spontaneous
  Country: BR (occurrence: BR)
  Receive Date: 20141111
  Receipt Date: 20150224
  Transmission Date: 20150720
  Serious: Yes (Other)
  Sender: FDA-Public Use
  Company Number: BR-JNJFOC-20141103142

PATIENT
  Age: 50 Year
  Sex: Female
  Weight: 73 kg

DRUGS (6)
  1. REMICADE [Suspect]
     Active Substance: INFLIXIMAB
     Indication: ANKYLOSING SPONDYLITIS
     Route: 042
     Dates: start: 20140925
  2. REMICADE [Suspect]
     Active Substance: INFLIXIMAB
     Indication: ANKYLOSING SPONDYLITIS
     Route: 042
     Dates: start: 20150127
  3. RIVOTRIL [Concomitant]
     Active Substance: CLONAZEPAM
     Indication: SLEEP DISORDER THERAPY
     Route: 065
  4. PREGABALIN. [Concomitant]
     Active Substance: PREGABALIN
     Indication: PAIN
     Route: 065
  5. REMICADE [Suspect]
     Active Substance: INFLIXIMAB
     Indication: ANKYLOSING SPONDYLITIS
     Route: 042
     Dates: start: 20141009
  6. NITRAZEPAM [Concomitant]
     Active Substance: NITRAZEPAM
     Indication: SLEEP DISORDER THERAPY
     Route: 065

REACTIONS (17)
  - Fatigue [Recovered/Resolved]
  - Blood pressure decreased [Recovering/Resolving]
  - Musculoskeletal stiffness [Recovering/Resolving]
  - Oropharyngeal pain [Recovered/Resolved]
  - Abasia [Recovering/Resolving]
  - Pyrexia [Recovered/Resolved]
  - Hypersensitivity [Not Recovered/Not Resolved]
  - Weight increased [Not Recovered/Not Resolved]
  - Pruritus [Unknown]
  - Bedridden [Recovering/Resolving]
  - Pain [Recovered/Resolved]
  - Cough [Not Recovered/Not Resolved]
  - Headache [Unknown]
  - Pain in extremity [Recovering/Resolving]
  - Ear pain [Recovered/Resolved]
  - Infusion related reaction [Recovering/Resolving]
  - Feeling hot [Unknown]

NARRATIVE: CASE EVENT DATE: 201409
